FAERS Safety Report 18356389 (Version 2)
Quarter: 2021Q1

REPORT INFORMATION
  Report Type: Spontaneous
  Country: CA (occurrence: CA)
  Receive Date: 20201007
  Receipt Date: 20210112
  Transmission Date: 20210419
  Serious: Yes (Other)
  Sender: FDA-Public Use
  Company Number: CA-SAMSUNG BIOEPIS-SB-2020-30323

PATIENT
  Age: 63 Year
  Sex: Female
  Weight: 56 kg

DRUGS (1)
  1. INFLIXIMAB [Suspect]
     Active Substance: INFLIXIMAB
     Indication: RHEUMATOID ARTHRITIS
     Route: 042

REACTIONS (9)
  - Infection [Recovered/Resolved]
  - Muscle strain [Recovered/Resolved]
  - Incorrect dose administered [Recovered/Resolved]
  - Product use issue [Recovered/Resolved]
  - Pneumonia [Recovered/Resolved]
  - Arthritis [Recovered/Resolved]
  - Inappropriate schedule of product administration [Recovered/Resolved]
  - Lung disorder [Recovered/Resolved]
  - Off label use [Recovered/Resolved]
